FAERS Safety Report 8146363-5 (Version None)
Quarter: 2012Q1

REPORT INFORMATION
  Report Type: 
  Country: None (occurrence: None)
  Receive Date: 20120217
  Receipt Date: 20120207
  Transmission Date: 20120608
  Serious: Yes (Other)
  Sender: FDA-Public Use
  Company Number: CA-ROCHE-1039992

PATIENT
  Sex: Female

DRUGS (5)
  1. SYMBICORT [Concomitant]
  2. SODIUM BICARBONATE/SODIUM CHLORIDE [Concomitant]
  3. ALVESCO [Concomitant]
  4. OMALIZUMAB [Suspect]
     Indication: ASTHMA
     Route: 058
     Dates: start: 20111213
  5. SINGULAIR [Concomitant]

REACTIONS (1)
  - CYSTIC FIBROSIS [None]
